FAERS Safety Report 8578272-1 (Version None)
Quarter: 2012Q2

REPORT INFORMATION
  Report Type: 
  Country: None (occurrence: None)
  Receive Date: 20120423
  Receipt Date: 20100216
  Transmission Date: 20120825
  Serious: Yes (Other)
  Sender: FDA-Public Use
  Company Number: PHHY2010US08405

PATIENT
  Age: 75 Year
  Sex: Female
  Weight: 78.9 kg

DRUGS (7)
  1. EXJADE [Suspect]
     Indication: MYELODYSPLASTIC SYNDROME
     Dosage: 2000 MG, QD, ORAL
     Route: 048
     Dates: start: 20080310
  2. EXJADE [Suspect]
     Indication: IRON OVERLOAD
     Dosage: 2000 MG, QD, ORAL
     Route: 048
     Dates: start: 20080310
  3. REVLIMID [Concomitant]
  4. DARVOCET (DEXTROPROPDXYPHENE NAPSILATE, PARACETAMOL) [Concomitant]
  5. ALLOPURINOL [Concomitant]
  6. AMBIEN [Concomitant]
  7. LASIX [Concomitant]

REACTIONS (1)
  - PLATELET COUNT DECREASED [None]
